FAERS Safety Report 22658457 (Version 1)
Quarter: 2023Q2

REPORT INFORMATION
  Report Type: Other
  Country: CZ (occurrence: None)
  Receive Date: 20230630
  Receipt Date: 20230630
  Transmission Date: 20230721
  Serious: Yes (Disabling, Other)
  Sender: FDA-Public Use
  Company Number: CZ-Navinta LLC-000456

PATIENT
  Age: 23 Year
  Sex: Female

DRUGS (9)
  1. CARMUSTINE [Suspect]
     Active Substance: CARMUSTINE
     Indication: Multiple sclerosis relapse
  2. ETOPOSIDE [Suspect]
     Active Substance: ETOPOSIDE
     Indication: Multiple sclerosis relapse
  3. CYTARABINE [Suspect]
     Active Substance: CYTARABINE
     Indication: Multiple sclerosis relapse
  4. MELPHALAN [Suspect]
     Active Substance: MELPHALAN
     Indication: Multiple sclerosis relapse
  5. THYMOGLOBULIN [Suspect]
     Active Substance: LAPINE T-LYMPHOCYTE IMMUNE GLOBULIN
     Indication: Multiple sclerosis relapse
  6. METHYLPREDNISOLONE [Suspect]
     Active Substance: METHYLPREDNISOLONE
     Indication: Multiple sclerosis relapse
     Dosage: 5 GRAMS OF INTRAVENOUS METHYLPREDNISOLONE
     Route: 042
  7. METHYLPREDNISOLONE [Suspect]
     Active Substance: METHYLPREDNISOLONE
     Indication: Multiple sclerosis relapse
     Dosage: 4 GRAMS OF INTRAVENOUS METHYLPREDNISOLONE
     Route: 042
  8. METHYLPREDNISOLONE [Suspect]
     Active Substance: METHYLPREDNISOLONE
     Indication: Multiple sclerosis relapse
     Dosage: 5 GRAMS OF INTRAVENOUS METHYLPREDNISOLONE
     Route: 042
  9. METHYLPREDNISOLONE [Suspect]
     Active Substance: METHYLPREDNISOLONE
     Indication: Multiple sclerosis relapse
     Dosage: 3 GRAMS OF INTRAVENOUS METHYLPREDNISOLONE
     Route: 042

REACTIONS (4)
  - Febrile neutropenia [Unknown]
  - Clostridium colitis [Unknown]
  - Multiple sclerosis relapse [Recovered/Resolved]
  - Mucosal inflammation [Unknown]

NARRATIVE: CASE EVENT DATE: 20190101
